FAERS Safety Report 8549796-8 (Version None)
Quarter: 2012Q3

REPORT INFORMATION
  Report Type: 
  Country: None (occurrence: None)
  Receive Date: 20120730
  Receipt Date: 20120726
  Transmission Date: 20120928
  Serious: Yes (Death, Other)
  Sender: FDA-Public Use
  Company Number: US-009507513-1207USA010403

PATIENT

DRUGS (1)
  1. NUVARING [Suspect]
     Indication: CONTRACEPTION
     Dosage: UNK
     Dates: start: 20100701, end: 20100725

REACTIONS (2)
  - PULMONARY EMBOLISM [None]
  - CARDIO-RESPIRATORY ARREST [None]
